FAERS Safety Report 8081651-2 (Version None)
Quarter: 2012Q1

REPORT INFORMATION
  Report Type: 
  Country: None (occurrence: None)
  Receive Date: 20120130
  Receipt Date: 20120127
  Transmission Date: 20120608
  Serious: Yes (Other)
  Sender: FDA-Public Use
  Company Number: US-BAYER-2012-009301

PATIENT
  Age: 51 Year
  Sex: Male
  Weight: 108.84 kg

DRUGS (2)
  1. ULTRAVIST 150 [Suspect]
     Dosage: UNK
     Route: 048
     Dates: start: 20120127
  2. ULTRAVIST 150 [Suspect]
     Indication: COMPUTERISED TOMOGRAM
     Dosage: 120 ML, ONCE
     Route: 042
     Dates: start: 20120127, end: 20120127

REACTIONS (3)
  - DYSPNOEA [None]
  - PHARYNGEAL OEDEMA [None]
  - BLOOD PRESSURE INCREASED [None]
